FAERS Safety Report 8050272-X (Version None)
Quarter: 2012Q1

REPORT INFORMATION
  Report Type: 
  Country: None (occurrence: None)
  Receive Date: 20120117
  Receipt Date: 20120110
  Transmission Date: 20120608
  Serious: Yes (Life-Threatening, Hospitalization)
  Sender: FDA-Public Use
  Company Number: US-ASTRAZENECA-2009UW02185

PATIENT
  Age: 56 Year
  Sex: Female
  Weight: 70.3 kg

DRUGS (32)
  1. SEROQUEL [Suspect]
     Route: 048
     Dates: start: 20070101
  2. SEROQUEL [Suspect]
     Route: 048
     Dates: start: 20070101
  3. SEROQUEL [Suspect]
     Route: 048
     Dates: start: 20070101
  4. SEROQUEL [Suspect]
     Route: 048
     Dates: start: 20060101, end: 20090801
  5. XANAX [Concomitant]
     Indication: PANIC DISORDER
  6. SEROQUEL [Suspect]
     Route: 048
     Dates: start: 20060101, end: 20090801
  7. SEROQUEL [Suspect]
     Route: 048
     Dates: start: 20060101, end: 20090801
  8. SEROQUEL [Suspect]
     Route: 048
     Dates: start: 20090801, end: 20090801
  9. SEROQUEL [Suspect]
     Route: 048
     Dates: start: 20090801
  10. SEROQUEL [Suspect]
     Route: 048
     Dates: start: 20060801, end: 20080801
  11. SEROQUEL [Suspect]
     Route: 048
     Dates: start: 20080801, end: 20090118
  12. SEROQUEL [Suspect]
     Route: 048
     Dates: start: 20080801, end: 20090118
  13. SEROQUEL [Suspect]
     Route: 048
     Dates: start: 20090801, end: 20090801
  14. SEROQUEL [Suspect]
     Route: 048
     Dates: start: 20090801, end: 20090801
  15. SEROQUEL [Suspect]
     Indication: SLEEP DISORDER THERAPY
     Route: 048
     Dates: start: 20060101
  16. SEROQUEL [Suspect]
     Indication: SCHIZOPHRENIA
     Route: 048
     Dates: start: 20060101
  17. SEROQUEL [Suspect]
     Route: 048
     Dates: start: 20090801
  18. SEROQUEL [Suspect]
     Route: 048
     Dates: start: 20060101, end: 20090801
  19. PROZAC [Concomitant]
  20. SEROQUEL [Suspect]
     Route: 048
     Dates: start: 20070101
  21. SEROQUEL [Suspect]
     Route: 048
     Dates: start: 20080801, end: 20090118
  22. SEROQUEL [Suspect]
     Route: 048
     Dates: start: 20090801
  23. TEGRETOL [Concomitant]
     Indication: GRAND MAL CONVULSION
  24. SEROQUEL [Suspect]
     Route: 048
     Dates: start: 20060801, end: 20080801
  25. SEROQUEL [Suspect]
     Indication: POST-TRAUMATIC STRESS DISORDER
     Route: 048
     Dates: start: 20060101
  26. SEROQUEL [Suspect]
     Indication: SLEEP DISORDER
     Route: 048
     Dates: start: 20060101
  27. SEROQUEL [Suspect]
     Route: 048
     Dates: start: 20060801, end: 20080801
  28. SEROQUEL [Suspect]
     Route: 048
     Dates: start: 20060801, end: 20080801
  29. SEROQUEL [Suspect]
     Route: 048
     Dates: start: 20080801, end: 20090118
  30. SEROQUEL [Suspect]
     Route: 048
     Dates: start: 20090801, end: 20090801
  31. SEROQUEL [Suspect]
     Route: 048
     Dates: start: 20090801
  32. TEGRETOL [Concomitant]
     Indication: CONVULSION

REACTIONS (16)
  - INCORRECT DOSE ADMINISTERED [None]
  - WRONG DRUG ADMINISTERED [None]
  - HALLUCINATION [None]
  - DRUG DOSE OMISSION [None]
  - STRESS [None]
  - CATATONIA [None]
  - WITHDRAWAL SYNDROME [None]
  - OFF LABEL USE [None]
  - PSYCHOTIC DISORDER [None]
  - SLEEP DISORDER [None]
  - APHASIA [None]
  - INSOMNIA [None]
  - SUICIDE ATTEMPT [None]
  - ABASIA [None]
  - MEMORY IMPAIRMENT [None]
  - DRUG INEFFECTIVE [None]
